FAERS Safety Report 25321156 (Version 1)
Quarter: 2025Q2

REPORT INFORMATION
  Report Type: Spontaneous
  Country: GB (occurrence: GB)
  Receive Date: 20250515
  Receipt Date: 20250515
  Transmission Date: 20250716
  Serious: Yes (Other)
  Sender: PRINSTON PHARMACEUTICAL
  Company Number: GB-PRINSTON PHARMACEUTICAL INC.-2025PRN00171

PATIENT
  Age: 32 Year
  Sex: Female

DRUGS (10)
  1. ARIPIPRAZOLE [Suspect]
     Active Substance: ARIPIPRAZOLE
     Indication: Depression
     Dosage: 2 MG, 1X/DAY
     Route: 065
     Dates: start: 2015
  2. ARIPIPRAZOLE [Suspect]
     Active Substance: ARIPIPRAZOLE
     Dosage: 5 MG, 1X/DAY
     Route: 065
  3. ARIPIPRAZOLE [Suspect]
     Active Substance: ARIPIPRAZOLE
     Dosage: 2 MG, 1X/DAY, (REDUCED FOR 30 DAYS)
     Route: 065
     Dates: start: 2015
  4. VENLAFAXINE [Concomitant]
     Active Substance: VENLAFAXINE HYDROCHLORIDE
     Dosage: 225 MG, 1X/DAY
     Route: 065
  5. NALTREXONE [Concomitant]
     Active Substance: NALTREXONE
     Indication: Drug dependence
     Dosage: 50 MG, 1X/DAY
     Route: 065
     Dates: start: 2019
  6. NALTREXONE [Concomitant]
     Active Substance: NALTREXONE
     Dosage: 100 MG, 1X/DAY
     Route: 065
     Dates: start: 2022
  7. NALTREXONE [Concomitant]
     Active Substance: NALTREXONE
     Dosage: 50 MG, 1X/DAY
     Route: 065
  8. BUPROPION [Concomitant]
     Active Substance: BUPROPION
     Dosage: 150 MG, 1X/DAY
  9. COCAINE [Concomitant]
     Active Substance: COCAINE
     Dosage: 0.5 G, 1X/DAY
  10. ESCITALOPRAM [Concomitant]
     Active Substance: ESCITALOPRAM OXALATE

REACTIONS (1)
  - Substance use disorder [Recovered/Resolved]
